FAERS Safety Report 24104759 (Version 1)
Quarter: 2024Q3

REPORT INFORMATION
  Report Type: Spontaneous
  Country: US (occurrence: US)
  Receive Date: 20240717
  Receipt Date: 20240717
  Transmission Date: 20241017
  Serious: Yes (Other)
  Sender: PFIZER
  Company Number: US-PFIZER INC-202400215308

PATIENT
  Age: 75 Year
  Sex: Male

DRUGS (1)
  1. INLYTA [Suspect]
     Active Substance: AXITINIB
     Dosage: 5 MG, 2X/DAY
     Route: 048
     Dates: start: 20240621

REACTIONS (5)
  - Diabetes mellitus [Unknown]
  - Haemorrhage [Unknown]
  - Back pain [Unknown]
  - Headache [Recovered/Resolved]
  - Dysphonia [Unknown]
